FAERS Safety Report 17110237 (Version 2)
Quarter: 2019Q4

REPORT INFORMATION
  Report Type: Spontaneous
  Country: NL (occurrence: NL)
  Receive Date: 20191204
  Receipt Date: 20191204
  Transmission Date: 20200122
  Serious: Yes (Hospitalization, Other)
  Sender: FDA-Public Use
  Company Number: NL-PFIZER INC-2019445298

PATIENT
  Age: 45 Year
  Sex: Male
  Weight: 62 kg

DRUGS (31)
  1. GLUCOSE + SODIUM CHLORIDE [Concomitant]
     Active Substance: DEXTROSE\SODIUM CHLORIDE
     Dosage: UNK
     Dates: start: 20190831, end: 20190903
  2. ONDANSETRON [Concomitant]
     Active Substance: ONDANSETRON
     Dosage: 8 MG, 2X/DAY
     Route: 042
     Dates: start: 20190826, end: 20190904
  3. BESPONSA [Suspect]
     Active Substance: INOTUZUMAB OZOGAMICIN
     Dosage: 0.9 MG, CYCLIC
     Route: 042
     Dates: start: 20190614, end: 20190614
  4. BESPONSA [Suspect]
     Active Substance: INOTUZUMAB OZOGAMICIN
     Dosage: 0.86 MG, CYCLIC
     Route: 042
     Dates: start: 20190624, end: 20190624
  5. DAGRAVIT TOTAL [ASCORBIC ACID;COLECALCIFEROL;DEXPANTHENOL;NICOTINAMIDE [Concomitant]
     Dosage: 1 DF, 1X/DAY
     Dates: start: 20190823, end: 20190909
  6. OXYCODON [Concomitant]
     Active Substance: OXYCODONE
     Dosage: 10 MG, 2X/DAY
     Dates: start: 20190911, end: 20190921
  7. LORAZEPAM. [Concomitant]
     Active Substance: LORAZEPAM
     Dosage: 0.5 MG, AS NEEDED 4X/ DAY
     Dates: start: 20190905, end: 20190905
  8. OXYCODON [Concomitant]
     Active Substance: OXYCODONE
     Dosage: 10 MG, 1X/DAY
     Dates: start: 20190902, end: 20190903
  9. VALACICLOVIR [Concomitant]
     Active Substance: VALACYCLOVIR HYDROCHLORIDE
     Dosage: 500 MG, 2X/DAY
     Dates: start: 20190823, end: 20190915
  10. CLEMASTIN [Concomitant]
     Active Substance: CLEMASTINE
     Dosage: 2 MG, SINGLE
     Route: 042
     Dates: start: 20190914, end: 20190914
  11. MEROPENEM. [Concomitant]
     Active Substance: MEROPENEM
     Dosage: 1000 MG, 3X/DAY
     Route: 042
     Dates: start: 20190912, end: 20190916
  12. AMPHOTERICIN [Concomitant]
     Active Substance: AMPHOTERICIN B
     Dosage: 500 MG, 4X/DAY
     Dates: start: 20190830, end: 20190903
  13. COLISTIN [Concomitant]
     Active Substance: COLISTIN
     Dosage: 200 MG, 4X/DAY
     Dates: start: 20190823, end: 20190903
  14. FUROSEMID [Concomitant]
     Active Substance: FUROSEMIDE
     Dosage: 20 MG, 2X/DAY
     Dates: start: 20190826, end: 20190903
  15. METOPROLOL. [Concomitant]
     Active Substance: METOPROLOL
     Dosage: 50 MG, 1X/DAY
     Dates: start: 20190823, end: 20191006
  16. CLEMASTIN [Concomitant]
     Active Substance: CLEMASTINE
     Dosage: 1 MG, 2X/DAY
     Dates: start: 20190907, end: 20190915
  17. CLEMASTIN [Concomitant]
     Active Substance: CLEMASTINE
     Dosage: 2 MG, SINGLE
     Route: 048
     Dates: start: 20190916, end: 20190916
  18. PREDNISOLON [PREDNISOLONE] [Concomitant]
     Active Substance: PREDNISOLONE
     Dosage: 25 MG, SINGLE
     Route: 042
     Dates: start: 20190914, end: 20190914
  19. BESPONSA [Suspect]
     Active Substance: INOTUZUMAB OZOGAMICIN
     Indication: ACUTE LYMPHOCYTIC LEUKAEMIA
     Dosage: 1.4 MG, CYCLIC
     Route: 042
     Dates: start: 20190531, end: 20190531
  20. BESPONSA [Suspect]
     Active Substance: INOTUZUMAB OZOGAMICIN
     Dosage: 0.9 MG, CYCLIC
     Route: 042
     Dates: start: 20190607, end: 20190607
  21. ACIDUM URSODEOXYCHOLICUM [Concomitant]
     Dosage: 450 MG, 2X/DAY
     Dates: start: 20190823
  22. BENZYLPENICILLIN [Concomitant]
     Active Substance: PENICILLIN G
     Dosage: 1000.000 IU, 4X/DAY
     Dates: start: 20190829, end: 20190912
  23. HYPROMELLOSE [Concomitant]
     Active Substance: HYPROMELLOSES
     Dosage: 1 GTT, 5/DAY
     Route: 047
     Dates: start: 20190901, end: 20190923
  24. OLIMEL E [Concomitant]
     Active Substance: AMINO ACIDS\DEXTROSE\ELECTROLYTES NOS\SOYBEAN OIL
     Dosage: 1000 ML, 2X/DAY
     Dates: start: 20190905, end: 20190916
  25. BESPONSA [Suspect]
     Active Substance: INOTUZUMAB OZOGAMICIN
     Dosage: 0.86 MG, CYCLIC
     Route: 042
     Dates: start: 20190702, end: 20190702
  26. BESPONSA [Suspect]
     Active Substance: INOTUZUMAB OZOGAMICIN
     Dosage: 0.86 MG, CYCLIC
     Route: 042
     Dates: start: 20190709, end: 20190709
  27. AMPHOTERICIN [Concomitant]
     Active Substance: AMPHOTERICIN B
     Dosage: 500 MG, 4X/DAY
     Dates: start: 20191009
  28. APREPITANT. [Concomitant]
     Active Substance: APREPITANT
     Dosage: 80 MG, SINGLE
     Dates: start: 20190902
  29. METOCLOPRAMIDE. [Concomitant]
     Active Substance: METOCLOPRAMIDE
     Dosage: 10 MG, 3X/DAY
     Dates: start: 20190829, end: 20190930
  30. CIPROFLOXACIN. [Concomitant]
     Active Substance: CIPROFLOXACIN
     Dosage: 500 MG, 2X/DAY
     Dates: start: 20190903, end: 20190915
  31. LORAZEPAM. [Concomitant]
     Active Substance: LORAZEPAM
     Dosage: 0.5 MG, AS NEEDED 4X/ DAY
     Dates: start: 20190903, end: 20190903

REACTIONS (9)
  - Weight increased [Unknown]
  - Abdominal distension [Unknown]
  - Nausea [Unknown]
  - Jaundice [Unknown]
  - Vomiting [Unknown]
  - Hepatic encephalopathy [Unknown]
  - Abdominal pain [Unknown]
  - Venoocclusive liver disease [Not Recovered/Not Resolved]
  - Ascites [Unknown]

NARRATIVE: CASE EVENT DATE: 20190916
